FAERS Safety Report 24109997 (Version 2)
Quarter: 2025Q3

REPORT INFORMATION
  Report Type: Spontaneous
  Country: EU (occurrence: EU)
  Receive Date: 20240718
  Receipt Date: 20250714
  Transmission Date: 20251021
  Serious: Yes (Hospitalization, Other)
  Sender: PFIZER
  Company Number: None

PATIENT
  Age: 83 Year
  Sex: Female
  Weight: 51 kg

DRUGS (25)
  1. DAPTOMYCIN [Suspect]
     Active Substance: DAPTOMYCIN
     Route: 048
     Dates: start: 202405, end: 202405
  2. LEVOFLOXACIN [Suspect]
     Active Substance: LEVOFLOXACIN
     Indication: Osteomyelitis
     Dosage: 750 MG, 1X/DAY
     Route: 048
     Dates: start: 202405, end: 20240618
  3. MINOCYCLINE [Suspect]
     Active Substance: MINOCYCLINE HYDROCHLORIDE
     Indication: Osteomyelitis
     Route: 048
     Dates: start: 202405, end: 20240619
  4. LEVOFLOXACIN [Concomitant]
     Active Substance: LEVOFLOXACIN
  5. BISOPROLOL [Concomitant]
     Active Substance: BISOPROLOL
  6. EBASTINE [Concomitant]
     Active Substance: EBASTINE
  7. CHOLECALCIFEROL [Concomitant]
     Active Substance: CHOLECALCIFEROL
  8. PRIMPERAN [Concomitant]
     Active Substance: METOCLOPRAMIDE HYDROCHLORIDE
  9. FOLIC ACID [Concomitant]
     Active Substance: FOLIC ACID
  10. ACETAMINOPHEN\OPIUM [Concomitant]
     Active Substance: ACETAMINOPHEN\OPIUM
  11. DAFALGAN [Concomitant]
     Active Substance: ACETAMINOPHEN
  12. HYDROXYZINE HYDROCHLORIDE [Concomitant]
     Active Substance: HYDROXYZINE HYDROCHLORIDE
  13. SERETIDE [Concomitant]
     Active Substance: FLUTICASONE PROPIONATE\SALMETEROL XINAFOATE
  14. MORPHINE SULFATE [Concomitant]
     Active Substance: MORPHINE SULFATE
  15. POLYETHYLENE GLYCOLS [Concomitant]
     Active Substance: POLYETHYLENE GLYCOLS
  16. BISOPROLOL [Concomitant]
     Active Substance: BISOPROLOL
  17. LERCANIDIPINE [Concomitant]
     Active Substance: LERCANIDIPINE
  18. EPOETIN ALFA [Concomitant]
     Active Substance: ERYTHROPOIETIN
  19. BETAMETHASONE [Concomitant]
     Active Substance: BETAMETHASONE
  20. FENTANYL [Concomitant]
     Active Substance: FENTANYL
  21. FOLIC ACID [Concomitant]
     Active Substance: FOLIC ACID
  22. SMECTA [Concomitant]
     Active Substance: MONTMORILLONITE
  23. RACECADOTRIL [Concomitant]
     Active Substance: RACECADOTRIL
  24. NOVORAPID [Concomitant]
     Active Substance: INSULIN ASPART
  25. METFORMIN HYDROCHLORIDE [Concomitant]
     Active Substance: METFORMIN HYDROCHLORIDE

REACTIONS (1)
  - Acute kidney injury [Unknown]

NARRATIVE: CASE EVENT DATE: 20240618
